FAERS Safety Report 8896478 (Version 1)
Quarter: 2012Q4

REPORT INFORMATION
  Report Type: Spontaneous
  Country: US (occurrence: None)
  Receive Date: 20121107
  Receipt Date: 20121107
  Transmission Date: 20130627
  Serious: Yes (Other)
  Sender: FDA-Public Use
  Company Number: None

PATIENT
  Age: 52 Year
  Sex: Male
  Weight: 83.6 kg

DRUGS (2)
  1. RITUXAN [Suspect]
     Dosage: 375mg/m2   q 28 days   IV Drip
     Route: 041
     Dates: start: 20110711, end: 20120110
  2. BENDAMUSTINE [Suspect]
     Dosage: 90mg/m2   q 28 days   IV Drip
     Route: 041
     Dates: start: 20110711, end: 20120111

REACTIONS (1)
  - Neutrophil count decreased [None]
